FAERS Safety Report 15547864 (Version 2)
Quarter: 2018Q4

REPORT INFORMATION
  Report Type: Report from Study
  Country: SI (occurrence: SI)
  Receive Date: 20181024
  Receipt Date: 20181207
  Transmission Date: 20190205
  Serious: Yes (Hospitalization, Other)
  Sender: FDA-Public Use
  Company Number: SI-BAYER-2017-045501

PATIENT
  Age: 69 Year
  Sex: Male

DRUGS (2)
  1. NEXAVAR [Suspect]
     Active Substance: SORAFENIB
     Indication: HEPATOCELLULAR CARCINOMA
     Dosage: 200 MG 2X1
  2. NEXAVAR [Suspect]
     Active Substance: SORAFENIB
     Indication: HEPATOCELLULAR CARCINOMA
     Dosage: 800 MG PER DAY
     Route: 048
     Dates: start: 20170306

REACTIONS (14)
  - Hypertension [Recovered/Resolved]
  - Haemorrhagic anaemia [None]
  - Diarrhoea [Recovered/Resolved]
  - Muscle spasms [Not Recovered/Not Resolved]
  - Diarrhoea [Recovered/Resolved]
  - Hypotension [Recovered/Resolved]
  - Nausea [Recovered/Resolved]
  - Aortic stenosis [None]
  - Haematemesis [None]
  - Dyspnoea [Recovered/Resolved]
  - Varices oesophageal [None]
  - Hepatic cirrhosis [None]
  - Ascites [None]
  - Haematochezia [Recovered/Resolved]

NARRATIVE: CASE EVENT DATE: 20170306
